FAERS Safety Report 12537061 (Version 1)
Quarter: 2016Q3

REPORT INFORMATION
  Report Type: Report from Study
  Country: BR (occurrence: BR)
  Receive Date: 20160707
  Receipt Date: 20160707
  Transmission Date: 20161109
  Serious: Yes (Other)
  Sender: FDA-Public Use
  Company Number: BR-JNJFOC-20160700843

PATIENT
  Sex: Female

DRUGS (4)
  1. RISONATO [Concomitant]
     Route: 065
  2. METHOTREXATE. [Concomitant]
     Active Substance: METHOTREXATE
     Route: 065
  3. SODIUM BICARBONATE. [Concomitant]
     Active Substance: SODIUM BICARBONATE
     Route: 065
  4. REMICADE [Suspect]
     Active Substance: INFLIXIMAB
     Indication: RHEUMATOID ARTHRITIS
     Route: 042
     Dates: start: 20100328, end: 20160112

REACTIONS (5)
  - Infusion related reaction [Unknown]
  - Skin discolouration [Unknown]
  - Malaise [Unknown]
  - Infusion site pain [Unknown]
  - Cardiac disorder [Unknown]
